FAERS Safety Report 17244459 (Version 5)
Quarter: 2020Q3

REPORT INFORMATION
  Report Type: Spontaneous
  Country: US (occurrence: US)
  Receive Date: 20200107
  Receipt Date: 20200925
  Transmission Date: 20201102
  Serious: Yes (Other)
  Sender: FDA-Public Use
  Company Number: US-GILEAD-2020-0445049

PATIENT
  Age: 57 Year
  Sex: Male
  Weight: 78 kg

DRUGS (57)
  1. HEPARIN [Concomitant]
     Active Substance: HEPARIN SODIUM
  2. LEXAPRO [Concomitant]
     Active Substance: ESCITALOPRAM OXALATE
  3. SPIRIVA [Concomitant]
     Active Substance: TIOTROPIUM BROMIDE MONOHYDRATE
  4. DICLOFENAC [Concomitant]
     Active Substance: DICLOFENAC
  5. CHLORHEXIDINE [Concomitant]
     Active Substance: CHLORHEXIDINE
  6. OFLOXACIN. [Concomitant]
     Active Substance: OFLOXACIN
  7. MEPERIDINE AND ATROPINE SULFATE [Concomitant]
     Active Substance: ATROPINE SULFATE\MEPERIDINE HYDROCHLORIDE
  8. FLOMAX RELIEF [Concomitant]
     Active Substance: TAMSULOSIN HYDROCHLORIDE
  9. EPIVIR [Concomitant]
     Active Substance: LAMIVUDINE
  10. KALETRA [Concomitant]
     Active Substance: LOPINAVIR\RITONAVIR
  11. IBUPROFEN. [Concomitant]
     Active Substance: IBUPROFEN
  12. QVAR [Concomitant]
     Active Substance: BECLOMETHASONE DIPROPIONATE
  13. ZITHROMAX [Concomitant]
     Active Substance: AZITHROMYCIN DIHYDRATE
  14. VIREAD [Suspect]
     Active Substance: TENOFOVIR DISOPROXIL FUMARATE
     Indication: HIV INFECTION
     Dosage: UNK
     Route: 048
     Dates: start: 20030325, end: 20090106
  15. CRESTOR [Concomitant]
     Active Substance: ROSUVASTATIN CALCIUM
  16. PREZCOBIX [Concomitant]
     Active Substance: COBICISTAT\DARUNAVIR ETHANOLATE
  17. TIVICAY [Concomitant]
     Active Substance: DOLUTEGRAVIR SODIUM
  18. PREDNISOLONE. [Concomitant]
     Active Substance: PREDNISOLONE
  19. ATRIPLA [Suspect]
     Active Substance: EFAVIRENZ\EMTRICITABINE\TENOFOVIR DISOPROXIL FUMARATE
     Indication: HIV INFECTION
     Dosage: UNK
     Route: 048
     Dates: start: 20090312, end: 20090410
  20. DESCOVY [Concomitant]
     Active Substance: EMTRICITABINE\TENOFOVIR ALAFENAMIDE FUMARATE
  21. AMPICILLIN [Concomitant]
     Active Substance: AMPICILLIN
  22. ATORVASTATIN [Concomitant]
     Active Substance: ATORVASTATIN
  23. PENICILLIN NOS [Concomitant]
     Active Substance: PENICILLIN
  24. AZASITE [Concomitant]
     Active Substance: AZITHROMYCIN MONOHYDRATE
  25. VIAGRA CONNECT [Concomitant]
     Active Substance: SILDENAFIL CITRATE
  26. DEMEROL [Concomitant]
     Active Substance: MEPERIDINE HYDROCHLORIDE
  27. ZYRTEC [Concomitant]
     Active Substance: CETIRIZINE HYDROCHLORIDE
  28. METOCLOPRAMIDE. [Concomitant]
     Active Substance: METOCLOPRAMIDE
  29. CALCIUM [Concomitant]
     Active Substance: CALCIUM
  30. ACETAMINOPHEN. [Concomitant]
     Active Substance: ACETAMINOPHEN
  31. AMOXICILLIN. [Concomitant]
     Active Substance: AMOXICILLIN
  32. BACTRIM [Concomitant]
     Active Substance: SULFAMETHOXAZOLE\TRIMETHOPRIM
  33. COMBIVIR [Concomitant]
     Active Substance: LAMIVUDINE\ZIDOVUDINE
  34. ZIAGEN [Concomitant]
     Active Substance: ABACAVIR SULFATE
  35. DEXAMETHASONE. [Concomitant]
     Active Substance: DEXAMETHASONE
  36. VENTOLIN [Concomitant]
     Active Substance: ALBUTEROL SULFATE
  37. NORVIR [Concomitant]
     Active Substance: RITONAVIR
  38. CELEXA [Concomitant]
     Active Substance: CITALOPRAM HYDROBROMIDE
  39. DULERA [Concomitant]
     Active Substance: FORMOTEROL FUMARATE DIHYDRATE\MOMETASONE FUROATE
  40. FLUNISOLIDE. [Concomitant]
     Active Substance: FLUNISOLIDE
  41. FLAGYL [Concomitant]
     Active Substance: METRONIDAZOLE\METRONIDAZOLE HYDROCHLORIDE
  42. MORPHINE [Concomitant]
     Active Substance: MORPHINE
  43. ALENDRONATE [Concomitant]
     Active Substance: ALENDRONATE SODIUM
  44. VITAMIN D [VITAMIN D NOS] [Concomitant]
     Active Substance: VITAMIN D NOS
     Indication: VITAMIN D DEFICIENCY
  45. ZETIA [Concomitant]
     Active Substance: EZETIMIBE
  46. VERSED [Concomitant]
     Active Substance: MIDAZOLAM HYDROCHLORIDE
  47. LACTATED RINGERS SOLUTION [Concomitant]
     Active Substance: CALCIUM CHLORIDE\POTASSIUM CHLORIDE\SODIUM CHLORIDE\SODIUM LACTATE
  48. CEFAZOLIN [Concomitant]
     Active Substance: CEFAZOLIN
  49. ONDANSETRON [Concomitant]
     Active Substance: ONDANSETRON
  50. TRUVADA [Suspect]
     Active Substance: EMTRICITABINE\TENOFOVIR DISOPROXIL FUMARATE
     Indication: HIV INFECTION
     Dosage: UNK
     Route: 048
     Dates: start: 20090107, end: 20170618
  51. ASPIRIN (E.C.) [Concomitant]
     Active Substance: ASPIRIN
  52. PREZISTA [Concomitant]
     Active Substance: DARUNAVIR ETHANOLATE
  53. TRIZIVIR [Concomitant]
     Active Substance: ABACAVIR SULFATE\LAMIVUDINE\ZIDOVUDINE
  54. TETRACYCLINE [Concomitant]
     Active Substance: TETRACYCLINE
  55. VANCOMYCIN [Concomitant]
     Active Substance: VANCOMYCIN
  56. BENZONATATE. [Concomitant]
     Active Substance: BENZONATATE
  57. OXYMETAZOLINE [Concomitant]
     Active Substance: OXYMETAZOLINE

REACTIONS (17)
  - Rib fracture [Unknown]
  - Anxiety [Unknown]
  - Pain [Unknown]
  - Wrist fracture [Recovered/Resolved]
  - Vitamin D deficiency [Unknown]
  - Bone loss [Unknown]
  - Emotional distress [Unknown]
  - Osteopenia [Not Recovered/Not Resolved]
  - Dyspnoea [Unknown]
  - Rash [Unknown]
  - Economic problem [Unknown]
  - Anhedonia [Unknown]
  - Bone density decreased [Unknown]
  - Rib fracture [Recovered/Resolved]
  - Rib fracture [Recovered/Resolved]
  - Osteoporosis [Not Recovered/Not Resolved]
  - Tooth loss [Not Recovered/Not Resolved]

NARRATIVE: CASE EVENT DATE: 20080128
